FAERS Safety Report 8388061-9 (Version None)
Quarter: 2012Q2

REPORT INFORMATION
  Report Type: 
  Country: None (occurrence: None)
  Receive Date: 20120525
  Receipt Date: 20120517
  Transmission Date: 20120825
  Serious: Yes (Hospitalization)
  Sender: FDA-Public Use
  Company Number: US-ABBOTT-12P-163-0936300-00

PATIENT
  Sex: Female
  Weight: 57.658 kg

DRUGS (2)
  1. ASACOL [Concomitant]
     Indication: PRODUCT USED FOR UNKNOWN INDICATION
  2. HUMIRA [Suspect]
     Indication: CROHN'S DISEASE
     Dates: start: 20070101, end: 20080101

REACTIONS (12)
  - VOMITING [None]
  - DIARRHOEA [None]
  - DECREASED APPETITE [None]
  - INTESTINAL FISTULA [None]
  - CROHN'S DISEASE [None]
  - WEIGHT DECREASED [None]
  - DRUG INEFFECTIVE [None]
  - ABDOMINAL RIGIDITY [None]
  - FISTULA [None]
  - ABDOMINAL PAIN [None]
  - MALAISE [None]
  - VISION BLURRED [None]
